FAERS Safety Report 13561903 (Version 1)
Quarter: 2017Q2

REPORT INFORMATION
  Report Type: Spontaneous
  Country: US (occurrence: US)
  Receive Date: 20170518
  Receipt Date: 20170518
  Transmission Date: 20170830
  Serious: Yes (Hospitalization)
  Sender: FDA-Public Use
  Company Number: US-ASTRAZENECA-2017SE51880

PATIENT
  Age: 88 Year
  Sex: Male

DRUGS (2)
  1. SYMBICORT [Suspect]
     Active Substance: BUDESONIDE\FORMOTEROL FUMARATE DIHYDRATE
     Indication: BRONCHITIS CHRONIC
     Dosage: UG UNKNOWN UNKNOWN
     Route: 055
  2. ALBUTEROL COMBIVENT [Concomitant]
     Indication: BRONCHITIS
     Route: 055
     Dates: start: 20170508

REACTIONS (1)
  - Bronchitis [Unknown]
